FAERS Safety Report 24981095 (Version 1)
Quarter: 2025Q1

REPORT INFORMATION
  Report Type: Spontaneous
  Country: US (occurrence: US)
  Receive Date: 20250218
  Receipt Date: 20250218
  Transmission Date: 20250409
  Serious: No
  Sender: MERZ
  Company Number: US-MERZ PHARMACEUTICALS, LLC-ACO_177413_2024

PATIENT
  Age: 56 Year
  Sex: Male

DRUGS (9)
  1. INBRIJA [Suspect]
     Active Substance: LEVODOPA
     Indication: Parkinson^s disease
     Dates: start: 20240618
  2. INBRIJA [Suspect]
     Active Substance: LEVODOPA
     Indication: On and off phenomenon
     Dates: start: 20240618
  3. INBRIJA [Suspect]
     Active Substance: LEVODOPA
     Dates: start: 20240618
  4. INBRIJA [Suspect]
     Active Substance: LEVODOPA
     Dates: start: 20240618
  5. CARBIDOPA\LEVODOPA [Concomitant]
     Active Substance: CARBIDOPA\LEVODOPA
     Indication: Product used for unknown indication
     Dosage: 4 DOSAGE FORM (250 MG), 6X/QD
     Route: 065
  6. CARBIDOPA\LEVODOPA [Concomitant]
     Active Substance: CARBIDOPA\LEVODOPA
     Dosage: 2 DOSAGE FORM (25/100 MG), BID
     Route: 065
  7. CARBIDOPA\LEVODOPA [Concomitant]
     Active Substance: CARBIDOPA\LEVODOPA
     Dosage: 1 DOSAGE FORM (25/100 MG), BID
     Route: 065
  8. CARBIDOPA\LEVODOPA [Concomitant]
     Active Substance: CARBIDOPA\LEVODOPA
     Dosage: ER, 1 DOSAGE FORM (25/100 MG), HS
     Route: 065
  9. CARBIDOPA\LEVODOPA [Concomitant]
     Active Substance: CARBIDOPA\LEVODOPA
     Dosage: 1 DOSAGE FORM (250 MG), QID
     Route: 065

REACTIONS (9)
  - Speech disorder [Unknown]
  - Wrong technique in product usage process [Unknown]
  - Device issue [Unknown]
  - Device deposit issue [Unknown]
  - Product storage error [Unknown]
  - Therapeutic product effect variable [Not Recovered/Not Resolved]
  - Device delivery system issue [Not Recovered/Not Resolved]
  - Product packaging issue [Not Recovered/Not Resolved]
  - Drug ineffective [Unknown]

NARRATIVE: CASE EVENT DATE: 20240619
